FAERS Safety Report 17327566 (Version 1)
Quarter: 2020Q1

REPORT INFORMATION
  Report Type: Spontaneous
  Country: AU (occurrence: AU)
  Receive Date: 20200127
  Receipt Date: 20200127
  Transmission Date: 20200409
  Serious: Yes (Other)
  Sender: FDA-Public Use
  Company Number: AU-OTSUKA-2020_002268

PATIENT
  Sex: Female

DRUGS (1)
  1. JINARC [Suspect]
     Active Substance: TOLVAPTAN
     Indication: PRODUCT USED FOR UNKNOWN INDICATION
     Dosage: UNK
     Route: 065

REACTIONS (8)
  - Pulmonary thrombosis [Unknown]
  - Nocturia [Unknown]
  - Product dose omission [Unknown]
  - Thirst [Unknown]
  - Insomnia [Unknown]
  - Polyuria [Unknown]
  - Therapeutic response unexpected [Unknown]
  - Dry mouth [Unknown]
